FAERS Safety Report 13113359 (Version 1)
Quarter: 2017Q1

REPORT INFORMATION
  Report Type: Spontaneous
  Country: US (occurrence: US)
  Receive Date: 20170113
  Receipt Date: 20170113
  Transmission Date: 20170428
  Serious: No
  Sender: FDA-Public Use
  Company Number: US-TEVA-692815USA

PATIENT
  Sex: Female

DRUGS (2)
  1. SALBUTAMOL W/IPRATROPIUM [Suspect]
     Active Substance: ALBUTEROL\IPRATROPIUM
     Indication: CHRONIC OBSTRUCTIVE PULMONARY DISEASE
     Dosage: .5MG/3MG
     Route: 065
  2. SALBUTAMOL W/IPRATROPIUM [Suspect]
     Active Substance: ALBUTEROL\IPRATROPIUM
     Indication: EMPHYSEMA

REACTIONS (4)
  - Product taste abnormal [Unknown]
  - Dyspnoea [Unknown]
  - Liquid product physical issue [Unknown]
  - Product colour issue [Unknown]
